FAERS Safety Report 6920995-1 (Version None)
Quarter: 2010Q3

REPORT INFORMATION
  Report Type: 
  Country: None (occurrence: None)
  Receive Date: 20100812
  Receipt Date: 20100805
  Transmission Date: 20110219
  Serious: Yes (Other)
  Sender: FDA-Public Use
  Company Number: US-EISAI INC.-E3810-03999-SPO-US

PATIENT
  Age: 68 Year
  Sex: Female
  Weight: 54 kg

DRUGS (3)
  1. ACIPHEX [Suspect]
     Indication: GASTROOESOPHAGEAL REFLUX DISEASE
     Route: 048
     Dates: start: 20100721
  2. ACIPHEX [Suspect]
     Route: 048
     Dates: start: 19930101, end: 20070101
  3. PEPCID COMPLETE [Concomitant]

REACTIONS (6)
  - BARRETT'S OESOPHAGUS [None]
  - EROSIVE OESOPHAGITIS [None]
  - HIATUS HERNIA [None]
  - MUSCULOSKELETAL CHEST PAIN [None]
  - OROPHARYNGEAL PAIN [None]
  - WEIGHT DECREASED [None]
